FAERS Safety Report 23218569 (Version 1)
Quarter: 2023Q4

REPORT INFORMATION
  Report Type: Spontaneous
  Country: US (occurrence: None)
  Receive Date: 20231122
  Receipt Date: 20231122
  Transmission Date: 20240110
  Serious: Yes (Life-Threatening)
  Sender: FDA-Public Use
  Company Number: None

PATIENT
  Age: 14 Year
  Sex: Male
  Weight: 36.7 kg

DRUGS (4)
  1. CYCLOPHOSPHAMIDE [Suspect]
     Active Substance: CYCLOPHOSPHAMIDE
     Dates: end: 20231117
  2. DACTINOMYCIN [Suspect]
     Active Substance: DACTINOMYCIN
     Dates: end: 20231017
  3. VINCRISTINE SULFATE [Suspect]
     Active Substance: VINCRISTINE SULFATE
     Dates: end: 20231101
  4. VINORELBINE TARTRATE [Suspect]
     Active Substance: VINORELBINE TARTRATE
     Dates: end: 20231024

REACTIONS (6)
  - Peripheral sensory neuropathy [None]
  - Insomnia [None]
  - Therapy interrupted [None]
  - Gait disturbance [None]
  - Muscle twitching [None]
  - Eye movement disorder [None]

NARRATIVE: CASE EVENT DATE: 20231107
